FAERS Safety Report 5356185-6 (Version None)
Quarter: 2007Q2

REPORT INFORMATION
  Report Type: 
  Country: None (occurrence: None)
  Receive Date: 20070613
  Receipt Date: 20070604
  Transmission Date: 20071010
  Serious: Yes (Other)
  Sender: FDA-Public Use
  Company Number: US-ABBOTT-07P-163-0370565-00

PATIENT
  Sex: Female
  Weight: 91 kg

DRUGS (3)
  1. HUMIRA [Suspect]
     Indication: RHEUMATOID ARTHRITIS
     Dosage: PFS
     Route: 058
     Dates: start: 20030101, end: 20060801
  2. HUMIRA [Suspect]
     Dosage: PEN + PFS
     Route: 058
     Dates: start: 20060801, end: 20061101
  3. HUMIRA [Suspect]
     Dosage: PEN + PFS
     Route: 058
     Dates: start: 20070101

REACTIONS (2)
  - ARTHROPATHY [None]
  - RHEUMATOID ARTHRITIS [None]
